FAERS Safety Report 5520952-6 (Version None)
Quarter: 2007Q4

REPORT INFORMATION
  Report Type: 
  Country: None (occurrence: None)
  Receive Date: 20071119
  Receipt Date: 20071112
  Transmission Date: 20080405
  Serious: Yes (Other)
  Sender: FDA-Public Use
  Company Number: PHBS2007BR18897

PATIENT
  Age: 71 Year
  Sex: Male
  Weight: 79 kg

DRUGS (3)
  1. HYDERGINE [Suspect]
     Indication: AMNESIA
     Dosage: 4.5 MG, QD
     Route: 048
     Dates: start: 20071108, end: 20071108
  2. HYDERGINE [Suspect]
     Dosage: 4.5 MG, QD
     Route: 048
     Dates: start: 20071111, end: 20071111
  3. GINKOBIL [Suspect]
     Indication: AMNESIA
     Dosage: UNK, QHS
     Route: 048
     Dates: start: 20070801

REACTIONS (7)
  - ASTHENIA [None]
  - BLOOD PRESSURE DECREASED [None]
  - DIZZINESS [None]
  - DIZZINESS POSTURAL [None]
  - DRUG INTERACTION [None]
  - RETCHING [None]
  - STOMACH DISCOMFORT [None]
